FAERS Safety Report 8942673 (Version 1)
Quarter: 2012Q4

REPORT INFORMATION
  Report Type: Report from Study
  Country: FR (occurrence: FR)
  Receive Date: 20121204
  Receipt Date: 20121204
  Transmission Date: 20130627
  Serious: Yes (Other)
  Sender: FDA-Public Use
  Company Number: FR-PFIZER INC-2012300361

PATIENT
  Age: 64 Year
  Sex: Female
  Weight: 46 kg

DRUGS (5)
  1. ARACYTINE [Suspect]
     Indication: ACUTE MYELOID LEUKEMIA
     Dosage: Day 1 to Day 7
     Dates: start: 20100508
  2. ARACYTINE [Suspect]
     Dosage: 2800 mg/day (Day 1 to Day 8)
     Route: 042
     Dates: start: 20100624, end: 20100702
  3. DAUNORUBICIN [Suspect]
     Indication: ACUTE MYELOID LEUKEMIA
     Dosage: Day 1 to Day 3
     Dates: start: 20100508
  4. DAUNORUBICIN [Suspect]
     Dosage: 85 mg/day (Day 1 to Day 3)
     Dates: start: 20100624, end: 20100627
  5. CORGARD [Concomitant]
     Indication: HYPERTENSION
     Dosage: 80 mg/day
     Route: 048

REACTIONS (1)
  - Bronchopulmonary aspergillosis [Recovered/Resolved]
